FAERS Safety Report 20659341 (Version 1)
Quarter: 2022Q1

REPORT INFORMATION
  Report Type: Spontaneous
  Country: JP (occurrence: JP)
  Receive Date: 20220331
  Receipt Date: 20220331
  Transmission Date: 20220424
  Serious: Yes (Other)
  Sender: FDA-Public Use
  Company Number: JP-GUERBET-JP-20220038

PATIENT
  Age: 67 Year
  Sex: Female

DRUGS (2)
  1. LIPIODOL [Suspect]
     Active Substance: ETHIODIZED OIL
     Indication: Sclerotherapy
     Dosage: LIPIODOL IN MIXTURE WITH HISTOACRYL
     Route: 065
  2. HISTOACRYL [Suspect]
     Active Substance: ENBUCRILATE
     Indication: Sclerotherapy
     Dosage: LIPIODOL IN MIXTURE WITH HISTOACRYL
     Route: 065

REACTIONS (1)
  - Hepatopulmonary syndrome [Unknown]
